FAERS Safety Report 23886223 (Version 3)
Quarter: 2024Q3

REPORT INFORMATION
  Report Type: Spontaneous
  Country: US (occurrence: US)
  Receive Date: 20240522
  Receipt Date: 20240709
  Transmission Date: 20241017
  Serious: Yes (Other)
  Sender: ASTELLAS
  Company Number: US-ASTELLAS-2024US014544

PATIENT
  Age: 87 Year
  Sex: Female

DRUGS (26)
  1. IZERVAY [Suspect]
     Active Substance: AVACINCAPTAD PEGOL SODIUM
     Indication: Dry age-related macular degeneration
     Dosage: 2MG IN A SINGLE-DOSE (OS, LEFT EYE)
     Route: 050
     Dates: start: 20231117, end: 20231117
  2. IZERVAY [Suspect]
     Active Substance: AVACINCAPTAD PEGOL SODIUM
     Indication: Dry age-related macular degeneration
     Dosage: 2MG IN A SINGLE-DOSE (OS, LEFT EYE)
     Route: 050
     Dates: start: 20231117, end: 20231117
  3. IZERVAY [Suspect]
     Active Substance: AVACINCAPTAD PEGOL SODIUM
     Indication: Dry age-related macular degeneration
     Dosage: 2MG IN A SINGLE-DOSE (OS, LEFT EYE)
     Route: 050
     Dates: start: 20231117, end: 20231117
  4. IZERVAY [Suspect]
     Active Substance: AVACINCAPTAD PEGOL SODIUM
     Indication: Dry age-related macular degeneration
     Dosage: 2MG IN A SINGLE-DOSE (OS, LEFT EYE)
     Route: 050
     Dates: start: 20231117, end: 20231117
  5. IZERVAY [Suspect]
     Active Substance: AVACINCAPTAD PEGOL SODIUM
     Indication: Dry age-related macular degeneration
     Dosage: 2MG IN A SINGLE-DOSE (OS, LEFT EYE)
     Route: 050
     Dates: start: 20231117, end: 20231117
  6. IZERVAY [Suspect]
     Active Substance: AVACINCAPTAD PEGOL SODIUM
     Dosage: 2MG IN A SINGLE-DOSE (OS, LEFT EYE) (2ND INJECTION)
     Route: 050
     Dates: start: 20240123, end: 20240123
  7. IZERVAY [Suspect]
     Active Substance: AVACINCAPTAD PEGOL SODIUM
     Dosage: 2MG IN A SINGLE-DOSE (OS, LEFT EYE) (2ND INJECTION)
     Route: 050
     Dates: start: 20240123, end: 20240123
  8. IZERVAY [Suspect]
     Active Substance: AVACINCAPTAD PEGOL SODIUM
     Dosage: 2MG IN A SINGLE-DOSE (OS, LEFT EYE) (2ND INJECTION)
     Route: 050
     Dates: start: 20240123, end: 20240123
  9. IZERVAY [Suspect]
     Active Substance: AVACINCAPTAD PEGOL SODIUM
     Dosage: 2MG IN A SINGLE-DOSE (OS, LEFT EYE) (2ND INJECTION)
     Route: 050
     Dates: start: 20240123, end: 20240123
  10. IZERVAY [Suspect]
     Active Substance: AVACINCAPTAD PEGOL SODIUM
     Dosage: 2MG IN A SINGLE-DOSE (OS, LEFT EYE) (2ND INJECTION)
     Route: 050
     Dates: start: 20240123, end: 20240123
  11. IZERVAY [Suspect]
     Active Substance: AVACINCAPTAD PEGOL SODIUM
     Dosage: 2MG IN A SINGLE-DOSE (OS, LEFT EYE)
     Route: 050
     Dates: start: 20240403, end: 20240403
  12. IZERVAY [Suspect]
     Active Substance: AVACINCAPTAD PEGOL SODIUM
     Dosage: 2MG IN A SINGLE-DOSE (OS, LEFT EYE)
     Route: 050
     Dates: start: 20240403, end: 20240403
  13. IZERVAY [Suspect]
     Active Substance: AVACINCAPTAD PEGOL SODIUM
     Dosage: 2MG IN A SINGLE-DOSE (OS, LEFT EYE)
     Route: 050
     Dates: start: 20240403, end: 20240403
  14. IZERVAY [Suspect]
     Active Substance: AVACINCAPTAD PEGOL SODIUM
     Dosage: 2MG IN A SINGLE-DOSE (OS, LEFT EYE)
     Route: 050
     Dates: start: 20240403, end: 20240403
  15. IZERVAY [Suspect]
     Active Substance: AVACINCAPTAD PEGOL SODIUM
     Dosage: 2MG IN A SINGLE-DOSE (OS, LEFT EYE)
     Route: 050
     Dates: start: 20240403, end: 20240403
  16. IZERVAY [Suspect]
     Active Substance: AVACINCAPTAD PEGOL SODIUM
     Dosage: 2MG IN A SINGLE-DOSE (OS, LEFT EYE)
     Route: 050
     Dates: start: 20240430, end: 20240430
  17. IZERVAY [Suspect]
     Active Substance: AVACINCAPTAD PEGOL SODIUM
     Dosage: 2MG IN A SINGLE-DOSE (OS, LEFT EYE)
     Route: 050
     Dates: start: 20240430, end: 20240430
  18. IZERVAY [Suspect]
     Active Substance: AVACINCAPTAD PEGOL SODIUM
     Dosage: 2MG IN A SINGLE-DOSE (OS, LEFT EYE)
     Route: 050
     Dates: start: 20240430, end: 20240430
  19. IZERVAY [Suspect]
     Active Substance: AVACINCAPTAD PEGOL SODIUM
     Dosage: 2MG IN A SINGLE-DOSE (OS, LEFT EYE)
     Route: 050
     Dates: start: 20240430, end: 20240430
  20. IZERVAY [Suspect]
     Active Substance: AVACINCAPTAD PEGOL SODIUM
     Dosage: 2MG IN A SINGLE-DOSE (OS, LEFT EYE)
     Route: 050
     Dates: start: 20240430, end: 20240430
  21. LEVOTHYROXINE [Concomitant]
     Active Substance: LEVOTHYROXINE\LEVOTHYROXINE SODIUM
     Indication: Product used for unknown indication
     Dosage: UNK UNK, UNKNOWN FREQ.
     Route: 065
  22. BIOTIN [Concomitant]
     Active Substance: BIOTIN
     Indication: Product used for unknown indication
     Dosage: UNK UNK, UNKNOWN FREQ.
     Route: 065
  23. CALCIUM\VITAMIN D [Concomitant]
     Active Substance: CALCIUM\VITAMIN D
     Indication: Product used for unknown indication
     Dosage: UNK UNK, UNKNOWN FREQ.
     Route: 065
  24. GLUCOSAMINE [Concomitant]
     Active Substance: GLUCOSAMINE
     Indication: Product used for unknown indication
     Dosage: UNK UNK, UNKNOWN FREQ.
     Route: 065
  25. ROSUVASTATIN [Concomitant]
     Active Substance: ROSUVASTATIN
     Indication: Product used for unknown indication
     Dosage: UNK UNK, UNKNOWN FREQ.
     Route: 065
  26. VITAMIN B12 [Concomitant]
     Active Substance: CYANOCOBALAMIN
     Indication: Product used for unknown indication
     Dosage: UNK UNK, UNKNOWN FREQ.
     Route: 065

REACTIONS (1)
  - Vitritis [Recovered/Resolved]

NARRATIVE: CASE EVENT DATE: 20240509
